FAERS Safety Report 22119629 (Version 1)
Quarter: 2023Q1

REPORT INFORMATION
  Report Type: Spontaneous
  Country: US (occurrence: None)
  Receive Date: 20230321
  Receipt Date: 20230321
  Transmission Date: 20230418
  Serious: No
  Sender: FDA-Public Use
  Company Number: US-ROCHE-3024878

PATIENT
  Age: 83 Year
  Sex: Female

DRUGS (1)
  1. ERIVEDGE [Suspect]
     Active Substance: VISMODEGIB
     Indication: Basal cell carcinoma
     Dosage: MAINTENANCE DOSE OF 150MG 2-3 TIMES PER WEEK ;ONGOING: UNKNOWN
     Route: 048
     Dates: start: 20170307

REACTIONS (1)
  - Dysphagia [Not Recovered/Not Resolved]
